FAERS Safety Report 24704196 (Version 3)
Quarter: 2025Q3

REPORT INFORMATION
  Report Type: Spontaneous
  Country: EU (occurrence: EU)
  Receive Date: 20241206
  Receipt Date: 20250731
  Transmission Date: 20251021
  Serious: No
  Sender: VELOXIS PHARMACEUTICALS
  Company Number: EU-Shilpa Medicare Limited-SML-DE-2021-00011

PATIENT
  Age: 14 Year
  Sex: Male

DRUGS (9)
  1. TACROLIMUS [Suspect]
     Active Substance: TACROLIMUS
     Indication: Graft versus host disease in gastrointestinal tract
     Route: 065
  2. SIROLIMUS [Concomitant]
     Active Substance: SIROLIMUS
     Indication: Immunosuppressant drug therapy
  3. SIROLIMUS [Concomitant]
     Active Substance: SIROLIMUS
     Indication: Acute graft versus host disease in intestine
  4. SIROLIMUS [Concomitant]
     Active Substance: SIROLIMUS
     Indication: Allogenic stem cell transplantation
  5. SIROLIMUS [Concomitant]
     Active Substance: SIROLIMUS
     Indication: Prophylaxis against graft versus host disease
  6. RUXOLITINIB [Concomitant]
     Active Substance: RUXOLITINIB
     Indication: Immunosuppressant drug therapy
  7. RUXOLITINIB [Concomitant]
     Active Substance: RUXOLITINIB
     Indication: Acute graft versus host disease in intestine
  8. RUXOLITINIB [Concomitant]
     Active Substance: RUXOLITINIB
     Indication: Allogenic stem cell transplantation
  9. RUXOLITINIB [Concomitant]
     Active Substance: RUXOLITINIB
     Indication: Prophylaxis against graft versus host disease

REACTIONS (3)
  - Drug ineffective for unapproved indication [Unknown]
  - Off label use [Unknown]
  - Off label use [Unknown]
